FAERS Safety Report 5236412-6 (Version None)
Quarter: 2007Q1

REPORT INFORMATION
  Report Type: 
  Country: None (occurrence: None)
  Receive Date: 20070212
  Receipt Date: 20070201
  Transmission Date: 20070707
  Serious: Yes (Death)
  Sender: FDA-Public Use
  Company Number: GB-PFIZER INC-2007009198

PATIENT
  Age: 23 Year
  Sex: Female

DRUGS (4)
  1. GENOTROPIN [Suspect]
     Indication: HYPOPITUITARISM
     Route: 058
  2. HYDROCORTISONE [Concomitant]
     Route: 048
  3. DEXAMETHASONE [Concomitant]
     Route: 048
     Dates: start: 20050812
  4. VALPROATE SODIUM [Concomitant]
     Route: 048
     Dates: start: 20040825

REACTIONS (1)
  - NEOPLASM RECURRENCE [None]
